FAERS Safety Report 7852616-8 (Version None)
Quarter: 2011Q4

REPORT INFORMATION
  Report Type: 
  Country: None (occurrence: None)
  Receive Date: 20111026
  Receipt Date: 20111020
  Transmission Date: 20120403
  Serious: Yes (Other)
  Sender: FDA-Public Use
  Company Number: US-GLAXOSMITHKLINE-A0950073A

PATIENT
  Age: 60 Year
  Sex: Female

DRUGS (4)
  1. WARFARIN SODIUM [Concomitant]
  2. REVATIO [Concomitant]
  3. ASPIRIN [Concomitant]
  4. FLOLAN [Suspect]
     Indication: PULMONARY ARTERIAL HYPERTENSION
     Dosage: 14NGKM PER DAY
     Route: 042
     Dates: start: 20110705

REACTIONS (2)
  - ANAEMIA [None]
  - HAEMORRHAGE [None]
